FAERS Safety Report 6032321-3 (Version None)
Quarter: 2009Q1

REPORT INFORMATION
  Report Type: 
  Country: None (occurrence: None)
  Receive Date: 20090109
  Receipt Date: 20081229
  Transmission Date: 20090719
  Serious: Yes (Hospitalization)
  Sender: FDA-Public Use
  Company Number: FR-WYE-H07433008

PATIENT
  Age: 45 Year
  Sex: Male

DRUGS (2)
  1. INIPOMP [Suspect]
     Route: 048
     Dates: start: 20081003, end: 20081118
  2. INDOCIN [Suspect]
     Dosage: DOSE AND FREQUENCY UNSPECIFIED
     Route: 048
     Dates: start: 20081103, end: 20081116

REACTIONS (2)
  - AGRANULOCYTOSIS [None]
  - PYREXIA [None]
